FAERS Safety Report 14967363 (Version 1)
Quarter: 2018Q2

REPORT INFORMATION
  Report Type: Spontaneous
  Country: US (occurrence: US)
  Receive Date: 20180604
  Receipt Date: 20180604
  Transmission Date: 20180711
  Serious: No
  Sender: FDA-Public Use
  Company Number: US-ASTRAZENECA-2018SE70269

PATIENT
  Age: 16419 Day
  Sex: Male
  Weight: 136.1 kg

DRUGS (6)
  1. MOVANTIK [Suspect]
     Active Substance: NALOXEGOL OXALATE
     Indication: CONSTIPATION
     Route: 048
     Dates: start: 20180513
  2. ZUMETTA [Concomitant]
     Indication: BONE DISORDER
     Dosage: EVERY THREE WEEKS
     Dates: start: 201802
  3. OXYCODONE [Concomitant]
     Active Substance: OXYCODONE
     Indication: PAIN
     Dosage: EVERY FOUR HOURS
     Route: 048
     Dates: start: 2017
  4. OXYCODONE [Concomitant]
     Active Substance: OXYCODONE
     Indication: PAIN
     Dosage: EVERY FOUR HOURS
     Route: 048
     Dates: start: 2017
  5. IMPLICITY [Concomitant]
     Indication: CHEMOTHERAPY
     Dosage: ONCE A WEEK
     Route: 042
     Dates: start: 201802
  6. NEURONTIN [Concomitant]
     Active Substance: GABAPENTIN
     Indication: NERVOUS SYSTEM DISORDER
     Dosage: DAILY
     Dates: start: 2017

REACTIONS (7)
  - Stress [Unknown]
  - Constipation [Recovered/Resolved]
  - Chest pain [Recovered/Resolved]
  - Hunger [Unknown]
  - Circumstance or information capable of leading to medication error [Recovered/Resolved]
  - Decreased appetite [Unknown]
  - Abdominal pain upper [Recovered/Resolved]

NARRATIVE: CASE EVENT DATE: 20180519
